FAERS Safety Report 8158794-8 (Version None)
Quarter: 2012Q1

REPORT INFORMATION
  Report Type: 
  Country: None (occurrence: None)
  Receive Date: 20120223
  Receipt Date: 20120215
  Transmission Date: 20120608
  Serious: Yes (Hospitalization)
  Sender: FDA-Public Use
  Company Number: PHHY2012NL013681

PATIENT
  Sex: Male
  Weight: 63 kg

DRUGS (3)
  1. PRAVASTATIN [Concomitant]
     Dosage: UNK UKN, UNK
     Dates: start: 20040101
  2. TOLBUTAMIDE [Suspect]
     Indication: DIABETES MELLITUS
     Dosage: UNK UKN, UNK
     Dates: start: 20040101
  3. METFORMIN HCL [Suspect]
     Indication: DIABETES MELLITUS
     Dosage: UNK UKN, UNK
     Dates: start: 20040101

REACTIONS (4)
  - GASTROOESOPHAGEAL REFLUX DISEASE [None]
  - ABDOMINAL DISCOMFORT [None]
  - DYSPNOEA [None]
  - ABDOMINAL PAIN [None]
